FAERS Safety Report 11612121 (Version 4)
Quarter: 2018Q2

REPORT INFORMATION
  Report Type: Report from Study
  Country: US (occurrence: US)
  Receive Date: 20151008
  Receipt Date: 20180410
  Transmission Date: 20180711
  Serious: No
  Sender: FDA-Public Use
  Company Number: PHEH2015US019959

PATIENT
  Sex: Female

DRUGS (3)
  1. GILENYA [Suspect]
     Active Substance: FINGOLIMOD HYDROCHLORIDE
     Indication: RELAPSING-REMITTING MULTIPLE SCLEROSIS
     Dosage: UNK
     Route: 048
     Dates: start: 20110101
  2. AMPYRA [Interacting]
     Active Substance: DALFAMPRIDINE
     Indication: PRODUCT USED FOR UNKNOWN INDICATION
     Route: 065
  3. GILENYA [Interacting]
     Active Substance: FINGOLIMOD HYDROCHLORIDE
     Dosage: UNK, QOD
     Route: 065

REACTIONS (6)
  - Emotional distress [Unknown]
  - White blood cell count decreased [Unknown]
  - Urinary tract infection [Unknown]
  - Nervousness [Unknown]
  - Drug interaction [Unknown]
  - Underdose [Unknown]
